FAERS Safety Report 4962582-0 (Version None)
Quarter: 2006Q1

REPORT INFORMATION
  Report Type: 
  Country: None (occurrence: None)
  Receive Date: 20060201
  Receipt Date: 20051021
  Transmission Date: 20060701
  Serious: No
  Sender: FDA-Public Use
  Company Number: 2005PV004164

PATIENT
  Age: 47 Year
  Sex: Female
  Weight: 104.7809 kg

DRUGS (3)
  1. BYETTA [Suspect]
     Indication: DIABETES MELLITUS NON-INSULIN-DEPENDENT
     Dosage: SEE IMAGE
     Route: 058
     Dates: start: 20051018, end: 20051021
  2. BYETTA [Suspect]
     Indication: DIABETES MELLITUS NON-INSULIN-DEPENDENT
     Dosage: SEE IMAGE
     Route: 058
     Dates: start: 20051001
  3. GLUCOPHAE ^BRISTOL MYERS SQUIBB^ [Concomitant]

REACTIONS (9)
  - BLOOD GLUCOSE DECREASED [None]
  - DIARRHOEA [None]
  - ERUCTATION [None]
  - FEELING JITTERY [None]
  - INJURY [None]
  - NAUSEA [None]
  - NERVOUSNESS [None]
  - TREMOR [None]
  - VOMITING [None]
